FAERS Safety Report 11175219 (Version 4)
Quarter: 2016Q2

REPORT INFORMATION
  Report Type: Report from Study
  Country: BR (occurrence: BR)
  Receive Date: 20150609
  Receipt Date: 20160412
  Transmission Date: 20160815
  Serious: Yes (Hospitalization, Other)
  Sender: FDA-Public Use
  Company Number: PHHY2015BR065567

PATIENT
  Age: 81 Year
  Sex: Female
  Weight: 64 kg

DRUGS (10)
  1. ACLASTA [Suspect]
     Active Substance: ZOLEDRONIC ACID
     Dosage: 5 MG, Q12MO (1 AMPOULE)
     Route: 042
     Dates: start: 201502
  2. ROSUVASTATIN. [Concomitant]
     Active Substance: ROSUVASTATIN
     Indication: HYPERLIPIDAEMIA
     Dosage: 1 DF, QD (START: 3 YEARS AGO)
     Route: 048
  3. PANTOPRAZOLE [Concomitant]
     Active Substance: PANTOPRAZOLE SODIUM
     Indication: PRODUCT USED FOR UNKNOWN INDICATION
     Dosage: 1 DF, QD
     Route: 048
  4. ATACAND COMB [Concomitant]
     Active Substance: CANDESARTAN CILEXETIL\FELODIPINE
     Dosage: 1 DF, QD (STARTED 2 YEARS AGO)
     Route: 048
  5. ATACAND COMB [Concomitant]
     Active Substance: CANDESARTAN CILEXETIL\FELODIPINE
     Indication: HYPERTENSION
     Dosage: 1 DF (16/5 MG), QD (STARTED 2 TO 3 YEARS AGO)
     Dates: end: 201411
  6. CALCIUM + VIT D [Concomitant]
     Active Substance: CALCIUM\VITAMIN D
     Indication: OSTEOPOROSIS
     Dosage: 1 DF (CALCIUM 500 MG, VITAMIN D 100 IU), QD (START: 15 YEARS AGO)
     Route: 048
  7. PRAVASTATIN [Concomitant]
     Active Substance: PRAVASTATIN\PRAVASTATIN SODIUM
     Indication: BLOOD CHOLESTEROL INCREASED
     Dosage: 1 DF, QD
     Route: 048
  8. ATLANSIL//AMIODARONE [Concomitant]
     Active Substance: AMIODARONE
     Indication: ARRHYTHMIA
     Dosage: 05 TABLETS A WEEK (15 YEARS AGO)
     Route: 048
  9. ALENIA [Concomitant]
     Active Substance: BUDESONIDE\FORMOTEROL FUMARATE
     Indication: EMPHYSEMA
     Dosage: 2 DF, QD (START: 15 YEARS AGO) (02 ASPIRATIONS A DAY)
     Route: 055
  10. ACLASTA [Suspect]
     Active Substance: ZOLEDRONIC ACID
     Indication: OSTEOPOROSIS
     Dosage: 5 MG, Q12MO (1 AMPOULE)(APPROXIMATELY 3 YEARS AGO)
     Route: 042

REACTIONS (7)
  - Swelling [Recovered/Resolved]
  - Incorrect dose administered [Unknown]
  - Blood creatinine increased [Not Recovered/Not Resolved]
  - Renal function test abnormal [Unknown]
  - Urine abnormality [Unknown]
  - Blood pressure increased [Recovered/Resolved]
  - Renal impairment [Unknown]

NARRATIVE: CASE EVENT DATE: 201411
